FAERS Safety Report 15494648 (Version 4)
Quarter: 2020Q2

REPORT INFORMATION
  Report Type: Spontaneous
  Country: US (occurrence: US)
  Receive Date: 20181012
  Receipt Date: 20200526
  Transmission Date: 20200713
  Serious: Yes (Other)
  Sender: FDA-Public Use
  Company Number: US-UCBSA-2018045639

PATIENT
  Age: 69 Year
  Sex: Female

DRUGS (1)
  1. CIMZIA [Suspect]
     Active Substance: CERTOLIZUMAB PEGOL
     Indication: RHEUMATOID ARTHRITIS
     Dosage: 200 MG, EV 2 WEEKS(QOW)
     Route: 058

REACTIONS (6)
  - Hormone level abnormal [Unknown]
  - Urinary tract infection [Unknown]
  - Abdominal pain [Unknown]
  - Weight decreased [Unknown]
  - Depressed mood [Unknown]
  - Balance disorder [Unknown]

NARRATIVE: CASE EVENT DATE: 201807
